FAERS Safety Report 25830518 (Version 1)
Quarter: 2025Q3

REPORT INFORMATION
  Report Type: Spontaneous
  Country: US (occurrence: US)
  Receive Date: 20250922
  Receipt Date: 20250922
  Transmission Date: 20251020
  Serious: Yes (Other)
  Sender: CHEPLAPHARM
  Company Number: US-CHEPLA-2025010996

PATIENT
  Age: 39 Year
  Sex: Female

DRUGS (9)
  1. GANCICLOVIR [Suspect]
     Active Substance: GANCICLOVIR
     Indication: Human herpesvirus 6 infection reactivation
  2. CEFTRIAXONE [Suspect]
     Active Substance: CEFTRIAXONE
     Indication: Human herpesvirus 6 infection reactivation
     Dosage: DAILY DOSE: 4 GRAM
     Route: 042
  3. VANCOMYCIN [Suspect]
     Active Substance: VANCOMYCIN
     Indication: Human herpesvirus 6 infection reactivation
     Dosage: DAILY DOSE: 30 MILLIGRAM
     Route: 042
  4. ACYCLOVIR [Suspect]
     Active Substance: ACYCLOVIR
     Indication: Human herpesvirus 6 infection reactivation
     Dosage: DAILY DOSE: 30 MILLIGRAM
     Route: 042
  5. LORAZEPAM [Suspect]
     Active Substance: LORAZEPAM
     Indication: Human herpesvirus 6 infection reactivation
     Route: 042
  6. HYDRALAZINE [Suspect]
     Active Substance: HYDRALAZINE HYDROCHLORIDE
     Indication: Hypertension
     Dosage: DAILY DOSE: 10 MILLIGRAM
     Route: 042
  7. NICARDIPINE [Suspect]
     Active Substance: NICARDIPINE
     Indication: Hypertension
     Dosage: DAILY DOSE: 120 MILLIGRAM
     Route: 042
  8. METHYLPREDNISOLONE [Suspect]
     Active Substance: METHYLPREDNISOLONE
     Indication: Human herpesvirus 6 infection reactivation
     Dosage: FIVE DAYS?DAILY DOSE: 1 GRAM
     Route: 042
  9. FOSCARNET [Suspect]
     Active Substance: FOSCARNET
     Indication: Human herpesvirus 6 infection reactivation

REACTIONS (6)
  - Pneumonia aspiration [Unknown]
  - Acute kidney injury [Unknown]
  - Renal tubular necrosis [Unknown]
  - Anaemia [Unknown]
  - Gait disturbance [Not Recovered/Not Resolved]
  - Off label use [Unknown]
